FAERS Safety Report 5144159-X (Version None)
Quarter: 2006Q4

REPORT INFORMATION
  Report Type: 
  Country: None (occurrence: None)
  Receive Date: 20061106
  Receipt Date: 20061030
  Transmission Date: 20070319
  Serious: Yes (Hospitalization)
  Sender: FDA-Public Use
  Company Number: US-MERCK-0611USA00453

PATIENT
  Age: 21 Year
  Sex: Male

DRUGS (4)
  1. DECADRON [Suspect]
     Indication: PSEUDOMONAS INFECTION
     Route: 048
  2. [THERAPY UNSPECIFIED] [Concomitant]
     Route: 065
  3. PREDNISONE TAB [Concomitant]
     Route: 065
  4. AZATHIOPRINE [Concomitant]
     Route: 065

REACTIONS (2)
  - BRAIN ABSCESS [None]
  - ZYGOMYCOSIS [None]
